FAERS Safety Report 8344346-3 (Version None)
Quarter: 2012Q2

REPORT INFORMATION
  Report Type: 
  Country: None (occurrence: None)
  Receive Date: 20120508
  Receipt Date: 20120503
  Transmission Date: 20120825
  Serious: Yes (Hospitalization)
  Sender: FDA-Public Use
  Company Number: FR-ABBOTT-12P-056-0924990-00

PATIENT
  Sex: Female
  Weight: 65 kg

DRUGS (3)
  1. DESOGESTREL AND ETHINYL ESTRADIOL [Suspect]
     Indication: CONTRACEPTION
     Dosage: 150 MCG/20 MCG, 1 IN 1 DAY
     Route: 048
     Dates: start: 20100301, end: 20120301
  2. HUMIRA [Suspect]
     Route: 058
     Dates: start: 20110701, end: 20120301
  3. HUMIRA [Suspect]
     Indication: PSORIATIC ARTHROPATHY
     Route: 058
     Dates: start: 20100801, end: 20110701

REACTIONS (5)
  - INTRACRANIAL VENOUS SINUS THROMBOSIS [None]
  - INTRACRANIAL PRESSURE INCREASED [None]
  - JUGULAR VEIN THROMBOSIS [None]
  - HEADACHE [None]
  - THROMBOPHLEBITIS [None]
